FAERS Safety Report 9626841 (Version 1)
Quarter: 2013Q4

REPORT INFORMATION
  Report Type: Spontaneous
  Country: DK (occurrence: DK)
  Receive Date: 20131016
  Receipt Date: 20131016
  Transmission Date: 20140711
  Serious: Yes (Death, Life-Threatening, Hospitalization)
  Sender: FDA-Public Use
  Company Number: DK-PFIZER INC-2013292898

PATIENT
  Age: 56 Year
  Sex: Female

DRUGS (3)
  1. ZARATOR [Suspect]
     Indication: HYPERCHOLESTEROLAEMIA
     Dosage: UNK
     Route: 048
     Dates: start: 200402
  2. ELTROXIN [Concomitant]
     Indication: HYPOTHYROIDISM
     Dosage: UNK
     Route: 048
     Dates: start: 200407
  3. AKARIN [Concomitant]
     Indication: DEPRESSION
     Dosage: UNK
     Route: 048
     Dates: start: 200405

REACTIONS (7)
  - Hepatic cirrhosis [Fatal]
  - Hepatic enzyme increased [Not Recovered/Not Resolved]
  - Anaemia [Unknown]
  - Depression [Unknown]
  - Syncope [Unknown]
  - Hypothyroidism [Unknown]
  - Insomnia [Unknown]
